FAERS Safety Report 26143497 (Version 1)
Quarter: 2025Q4

REPORT INFORMATION
  Report Type: Spontaneous
  Country: EU (occurrence: EU)
  Receive Date: 20251211
  Receipt Date: 20251211
  Transmission Date: 20260117
  Serious: Yes (Life-Threatening)
  Sender: AUROBINDO
  Company Number: EU-MINISAL02-1069597

PATIENT
  Age: 12 Year
  Sex: Female
  Weight: 80 kg

DRUGS (1)
  1. ACETAMINOPHEN [Suspect]
     Active Substance: ACETAMINOPHEN
     Indication: Analgesic therapy
     Dosage: 7 GRAM, ONCE A DAY (ASSUNTE 7 CPR DA 1 G IN 1 ORA)
     Dates: start: 20230925, end: 20230925

REACTIONS (1)
  - Toxicity to various agents [Recovered/Resolved]

NARRATIVE: CASE EVENT DATE: 20230925
